FAERS Safety Report 9529940 (Version 2)
Quarter: 2013Q3

REPORT INFORMATION
  Report Type: Report from Study
  Country: IT (occurrence: IT)
  Receive Date: 20130917
  Receipt Date: 20130917
  Transmission Date: 20140515
  Serious: Yes (Hospitalization)
  Sender: FDA-Public Use
  Company Number: IT-TEVA-388892USA

PATIENT
  Age: 79 Year
  Sex: Male

DRUGS (14)
  1. BENDAMUSTINE [Suspect]
     Indication: MANTLE CELL LYMPHOMA
     Route: 042
     Dates: start: 20130122, end: 20130125
  2. BENDAMUSTINE [Suspect]
     Route: 042
     Dates: start: 20130228, end: 20130303
  3. RITUXIMAB [Suspect]
     Indication: MANTLE CELL LYMPHOMA
     Route: 042
     Dates: start: 20130122, end: 20130125
  4. RITUXIMAB [Suspect]
     Route: 042
     Dates: start: 20130228, end: 20130303
  5. CYTARABINE [Suspect]
     Indication: MANTLE CELL LYMPHOMA
     Route: 042
     Dates: start: 20130122, end: 20130125
  6. CYTARABINE [Suspect]
     Route: 042
     Dates: start: 20130228, end: 20130303
  7. ESOPRAL [Concomitant]
  8. ACTOS [Concomitant]
  9. TAREG [Concomitant]
  10. TORVAST [Concomitant]
  11. TRIATEC [Concomitant]
  12. INSULIN [Concomitant]
  13. BACTRIM [Concomitant]
  14. CARDIOASPIRINE [Concomitant]

REACTIONS (2)
  - Pancytopenia [Recovered/Resolved]
  - Epistaxis [Recovered/Resolved]
